FAERS Safety Report 8877996 (Version 1)
Quarter: 2012Q4

REPORT INFORMATION
  Report Type: 
  Country: US (occurrence: US)
  Receive Date: 20121025
  Receipt Date: 20121025
  Transmission Date: 20130627
  Serious: No
  Sender: FDA-Public Use
  Company Number: US-AMGEN-USASP2012020761

PATIENT
  Sex: Female

DRUGS (15)
  1. ENBREL [Suspect]
     Indication: PRODUCT USED FOR UNKNOWN INDICATION
     Dosage: 50 mg, qwk
     Route: 058
  2. HUMULIN R [Concomitant]
  3. METHOTREXATE [Concomitant]
     Dosage: 2.5 mg, UNK
  4. PREDNISONE [Concomitant]
     Dosage: 2.5 mg, UNK
  5. LIPITOR [Concomitant]
     Dosage: 20 mg, UNK
  6. CARVEDILOL [Concomitant]
     Dosage: 3.125 mg, UNK
  7. LISINOPRIL HCTZ [Concomitant]
  8. OMEPRAZOLE [Concomitant]
     Dosage: 20 mg, UNK
  9. LEVOTHYROXIN [Concomitant]
     Dosage: 25 mug, UNK
  10. CRESTOR [Concomitant]
     Dosage: 10 mg, UNK
  11. HYDROCODONE W/APAP                 /00607101/ [Concomitant]
  12. ASPIRIN [Concomitant]
     Dosage: 81 mg, UNK
  13. FOLIC ACID [Concomitant]
  14. MUCINEX D [Concomitant]
  15. OMEGA 3                            /01334101/ [Concomitant]
     Dosage: 340 mg, UNK

REACTIONS (1)
  - Drug ineffective [Unknown]
